FAERS Safety Report 9992348 (Version 1)
Quarter: 2014Q1

REPORT INFORMATION
  Report Type: Spontaneous
  Country: US (occurrence: US)
  Receive Date: 20140310
  Receipt Date: 20140310
  Transmission Date: 20141002
  Serious: Yes (Hospitalization)
  Sender: FDA-Public Use
  Company Number: US-GLAXOSMITHKLINE-A1062892A

PATIENT
  Age: 58 Year
  Sex: Male

DRUGS (20)
  1. ADVAIR [Suspect]
     Indication: CHRONIC OBSTRUCTIVE PULMONARY DISEASE
     Dosage: 1PUFF TWICE PER DAY
     Route: 055
     Dates: start: 2012
  2. PRO-AIR [Concomitant]
  3. VENTOLIN [Concomitant]
  4. SPIRIVA [Concomitant]
  5. ALBUTEROL SULFATE NEBULIZER [Concomitant]
  6. LOMOTIL [Concomitant]
  7. CITALOPRAM [Concomitant]
  8. AMLODIPINE [Concomitant]
  9. ATORVASTATIN [Concomitant]
  10. CETIRIZINE [Concomitant]
  11. METRONIDAZOLE [Concomitant]
  12. PANTOPRAZOLE [Concomitant]
  13. PRAVASTATIN [Concomitant]
  14. IMDUR [Concomitant]
  15. TIZANIDINE [Concomitant]
  16. MONTELUKAST [Concomitant]
  17. METFORMIN [Concomitant]
  18. LOSARTAN [Concomitant]
  19. FLUTICASONE [Concomitant]
  20. CLONAZEPAM [Concomitant]

REACTIONS (5)
  - Gastric infection [Recovering/Resolving]
  - Dyspnoea [Recovering/Resolving]
  - Bronchitis [Recovering/Resolving]
  - Sinusitis [Recovering/Resolving]
  - Blood glucose increased [Recovering/Resolving]
